FAERS Safety Report 10183075 (Version 1)
Quarter: 2014Q2

REPORT INFORMATION
  Report Type: Spontaneous
  Country: US (occurrence: US)
  Receive Date: 20140520
  Receipt Date: 20140520
  Transmission Date: 20141212
  Serious: No
  Sender: FDA-Public Use
  Company Number: US-BAYER-2014-073580

PATIENT
  Age: 76 Year
  Sex: Male
  Weight: 155 kg

DRUGS (5)
  1. ALEVE CAPLET [Suspect]
     Indication: ANALGESIC THERAPY
     Dosage: 0.5 DF, PRN
     Route: 048
  2. ALEVE CAPLET [Suspect]
     Indication: ANALGESIC THERAPY
     Route: 048
  3. VITAMIN D [Concomitant]
  4. OXYCONTIN [Concomitant]
  5. METFORMIN [Concomitant]

REACTIONS (3)
  - Incorrect dose administered [None]
  - Abdominal discomfort [Recovered/Resolved]
  - Diarrhoea [Recovered/Resolved]
